FAERS Safety Report 6804047-7 (Version None)
Quarter: 2010Q2

REPORT INFORMATION
  Report Type: 
  Country: None (occurrence: None)
  Receive Date: 20100628
  Receipt Date: 20070130
  Transmission Date: 20101027
  Serious: No
  Sender: FDA-Public Use
  Company Number: US-PFIZER INC-2006098594

PATIENT
  Sex: Female

DRUGS (7)
  1. CADUET [Suspect]
     Indication: BLOOD PRESSURE
     Dosage: 10/80MG; 10/80MG
     Route: 048
     Dates: start: 20040712, end: 20060804
  2. CADUET [Interacting]
     Indication: BLOOD CHOLESTEROL
  3. ACTOS [Interacting]
     Indication: DIABETES MELLITUS
     Route: 048
     Dates: start: 20050929
  4. ACTOS [Interacting]
     Indication: BLOOD PRESSURE
  5. ACTOS [Interacting]
     Indication: BLOOD CHOLESTEROL
  6. NORVASC [Concomitant]
     Indication: BLOOD PRESSURE
     Dosage: DAILY: EVERY DAY
     Route: 048
     Dates: start: 19950411
  7. NORVASC [Concomitant]
     Indication: BLOOD CHOLESTEROL

REACTIONS (2)
  - DRUG INTERACTION [None]
  - SWELLING [None]
